FAERS Safety Report 16970704 (Version 1)
Quarter: 2019Q4

REPORT INFORMATION
  Report Type: Spontaneous
  Country: US (occurrence: US)
  Receive Date: 20191029
  Receipt Date: 20191029
  Transmission Date: 20200122
  Serious: No
  Sender: FDA-Public Use
  Company Number: US-EX USA HOLDINGS-EXHL20192411

PATIENT
  Sex: Female

DRUGS (2)
  1. EMOQUETTE [Suspect]
     Active Substance: DESOGESTREL\ETHINYL ESTRADIOL
     Indication: PRODUCT USED FOR UNKNOWN INDICATION
     Dosage: 1 TABLET
     Route: 048
     Dates: start: 20190904
  2. EMOQUETTE [Suspect]
     Active Substance: DESOGESTREL\ETHINYL ESTRADIOL
     Dosage: 1 TABLET
     Route: 048
     Dates: start: 201809, end: 20190903

REACTIONS (2)
  - Metrorrhagia [Not Recovered/Not Resolved]
  - Product substitution issue [Not Recovered/Not Resolved]
